FAERS Safety Report 7057606-3 (Version None)
Quarter: 2010Q4

REPORT INFORMATION
  Report Type: 
  Country: None (occurrence: None)
  Receive Date: 20101022
  Receipt Date: 20101014
  Transmission Date: 20110411
  Serious: Yes (Hospitalization)
  Sender: FDA-Public Use
  Company Number: FR-ROCHE-734231

PATIENT
  Sex: Female
  Weight: 55 kg

DRUGS (7)
  1. BEVACIZUMAB [Suspect]
     Indication: RECTAL CANCER
     Route: 042
     Dates: start: 20100607
  2. BEVACIZUMAB [Suspect]
     Dosage: LAST DOSE PRIOR TO SAE 27 SEP 2010
     Route: 042
     Dates: start: 20100913, end: 20101011
  3. OXALIPLATIN [Suspect]
     Indication: RECTAL CANCER
     Route: 042
     Dates: start: 20100607
  4. ACIDE FOLIQUE [Suspect]
     Indication: RECTAL CANCER
     Route: 042
     Dates: start: 20100607
  5. FLUOROURACIL [Suspect]
     Indication: RECTAL CANCER
     Dosage: INTRAVENOUS BOLUS
     Route: 042
     Dates: start: 20100607
  6. FLUOROURACIL [Suspect]
     Dosage: ROUTE: IV
     Route: 042
     Dates: start: 20100607
  7. FLUOROURACIL [Suspect]
     Route: 042
     Dates: start: 20100927, end: 20101011

REACTIONS (1)
  - ILEITIS [None]
